FAERS Safety Report 4938846-3 (Version None)
Quarter: 2006Q1

REPORT INFORMATION
  Report Type: 
  Country: None (occurrence: None)
  Receive Date: 20060309
  Receipt Date: 20051223
  Transmission Date: 20060701
  Serious: Yes (Hospitalization, Disabling)
  Sender: FDA-Public Use
  Company Number: US-MERCK-0512USA03770

PATIENT
  Age: 55 Year
  Sex: Male
  Weight: 90 kg

DRUGS (2)
  1. VIOXX [Suspect]
     Indication: ARTHRALGIA
     Route: 048
     Dates: start: 20010416, end: 20040831
  2. COUMADIN [Suspect]
     Route: 065

REACTIONS (5)
  - BRONCHITIS ACUTE [None]
  - CHEST INJURY [None]
  - HAEMOPTYSIS [None]
  - MYOCARDIAL INFARCTION [None]
  - VIRAL INFECTION [None]
